FAERS Safety Report 7236526-5 (Version None)
Quarter: 2011Q1

REPORT INFORMATION
  Report Type: 
  Country: None (occurrence: None)
  Receive Date: 20110111
  Receipt Date: 20101231
  Transmission Date: 20110831
  Serious: Yes (Other)
  Sender: FDA-Public Use
  Company Number: 2010AP002707

PATIENT
  Age: 42 Year
  Sex: Male

DRUGS (3)
  1. PERINDOPRIL ERBUMINE [Suspect]
     Dosage: 4 MG; QD PO
     Route: 048
     Dates: start: 20090101, end: 20100101
  2. SIMVASTATIN [Concomitant]
  3. ASPIRIN [Concomitant]

REACTIONS (1)
  - INFERTILITY MALE [None]
